FAERS Safety Report 8373153-0 (Version None)
Quarter: 2012Q2

REPORT INFORMATION
  Report Type: 
  Country: None (occurrence: None)
  Receive Date: 20120521
  Receipt Date: 20120516
  Transmission Date: 20120825
  Serious: Yes (Hospitalization, Other)
  Sender: FDA-Public Use
  Company Number: US-BAYER-2011-083538

PATIENT
  Age: 26 Year
  Sex: Female
  Weight: 71.655 kg

DRUGS (1)
  1. YASMIN [Suspect]
     Dosage: UNK
     Dates: start: 20040101, end: 20060501

REACTIONS (15)
  - ATAXIA [None]
  - MATERNAL EXPOSURE BEFORE PREGNANCY [None]
  - ANTITHROMBIN III DECREASED [None]
  - PREGNANCY [None]
  - CHEST PAIN [None]
  - PARAESTHESIA [None]
  - INJURY [None]
  - DIZZINESS [None]
  - ANXIETY [None]
  - HYPOAESTHESIA [None]
  - PULMONARY EMBOLISM [None]
  - DEEP VEIN THROMBOSIS [None]
  - PAIN [None]
  - MUSCLE STRAIN [None]
  - PALPITATIONS [None]
